FAERS Safety Report 7761649-1 (Version None)
Quarter: 2011Q3

REPORT INFORMATION
  Report Type: 
  Country: None (occurrence: None)
  Receive Date: 20110920
  Receipt Date: 20110916
  Transmission Date: 20111222
  Serious: Yes (Disabling, Other)
  Sender: FDA-Public Use
  Company Number: JP-BRISTOL-MYERS SQUIBB COMPANY-15576119

PATIENT
  Age: 57 Year
  Sex: Male
  Weight: 63 kg

DRUGS (7)
  1. BARACLUDE [Suspect]
     Indication: HEPATIC CIRRHOSIS
     Dosage: 09FEB11
     Route: 048
     Dates: start: 20110126
  2. AMARYL [Concomitant]
     Indication: DIABETES MELLITUS
     Dosage: TABS
     Route: 048
     Dates: start: 20080804
  3. IRBETAN [Concomitant]
     Indication: HYPERTENSION
     Dosage: TABS
     Route: 048
     Dates: start: 20080804
  4. LASIX [Suspect]
     Dates: start: 20110223, end: 20110320
  5. JANUVIA [Concomitant]
     Indication: DIABETES MELLITUS
     Dosage: TABS
     Route: 048
     Dates: start: 20080804
  6. ALDACTONE [Concomitant]
     Route: 048
     Dates: start: 20110223, end: 20110320
  7. ACTOS [Concomitant]
     Route: 048

REACTIONS (6)
  - HEPATIC CIRRHOSIS [None]
  - ANTINUCLEAR ANTIBODY INCREASED [None]
  - ANAEMIA [None]
  - IMMUNOGLOBULINS INCREASED [None]
  - ASCITES [None]
  - BLOOD POTASSIUM DECREASED [None]
